FAERS Safety Report 7782754-X (Version None)
Quarter: 2011Q3

REPORT INFORMATION
  Report Type: 
  Country: None (occurrence: None)
  Receive Date: 20110928
  Receipt Date: 20110921
  Transmission Date: 20111222
  Serious: Yes (Other)
  Sender: FDA-Public Use
  Company Number: US-PFIZER INC-2011225267

PATIENT
  Sex: Female
  Weight: 67.12 kg

DRUGS (3)
  1. PRIMIDONE [Concomitant]
     Indication: CONVULSION
     Dosage: UNK
  2. MOBIC [Suspect]
     Indication: ARTHRITIS
     Dosage: 50 MG, 1X/DAY
     Route: 048
  3. CELEBREX [Suspect]
     Indication: ARTHRITIS
     Dosage: UNK
     Route: 048

REACTIONS (9)
  - CATARACT [None]
  - DRY EYE [None]
  - DRUG INEFFECTIVE [None]
  - NERVE COMPRESSION [None]
  - OESOPHAGEAL DISORDER [None]
  - INTERVERTEBRAL DISC DISORDER [None]
  - OEDEMA PERIPHERAL [None]
  - WEIGHT DECREASED [None]
  - CONSTIPATION [None]
